FAERS Safety Report 4825813-3 (Version None)
Quarter: 2005Q4

REPORT INFORMATION
  Report Type: 
  Country: None (occurrence: None)
  Receive Date: 20051111
  Receipt Date: 20051031
  Transmission Date: 20060501
  Serious: Yes (Death)
  Sender: FDA-Public Use
  Company Number: IN-JNJFOC-20051100337

PATIENT

DRUGS (1)
  1. REMICADE [Suspect]
     Route: 042

REACTIONS (1)
  - EPILEPSY [None]
